FAERS Safety Report 9956055 (Version 1)
Quarter: 2014Q1

REPORT INFORMATION
  Report Type: Spontaneous
  Country: US (occurrence: US)
  Receive Date: 20140304
  Receipt Date: 20140304
  Transmission Date: 20141002
  Serious: No
  Sender: FDA-Public Use
  Company Number: US-ABBVIE-13P-163-1090478-00

PATIENT
  Sex: Female
  Weight: 99.88 kg

DRUGS (21)
  1. HUMIRA [Suspect]
     Indication: PSORIASIS
  2. METFORMIN [Concomitant]
     Indication: DIABETES MELLITUS
  3. GLYBURIDE [Concomitant]
     Indication: DIABETES MELLITUS
  4. LANTUS [Concomitant]
     Indication: DIABETES MELLITUS
  5. HUMALOG [Concomitant]
     Indication: DIABETES MELLITUS
  6. SIMVASTATIN [Concomitant]
     Indication: BLOOD CHOLESTEROL INCREASED
  7. PROPANOLOL [Concomitant]
     Indication: HYPERTENSION
  8. LISINOPRIL [Concomitant]
     Indication: HYPERTENSION
  9. TRIAMTERENE [Concomitant]
     Indication: HYPERTENSION
  10. OMEPRAZOLE [Concomitant]
     Indication: GASTROOESOPHAGEAL REFLUX DISEASE
  11. ALLEGRA [Concomitant]
     Indication: SEASONAL ALLERGY
  12. TOPICAL STEROID [Concomitant]
     Indication: PSORIASIS
     Route: 061
  13. GABAPENTIN [Concomitant]
     Indication: NEUROPATHY PERIPHERAL
  14. CITALOPRAM [Concomitant]
     Indication: DEPRESSION
  15. ZOLPIDEM [Concomitant]
     Indication: INSOMNIA
  16. HYDROCODONE W/APAP [Concomitant]
     Indication: BACK PAIN
  17. HYDROCODONE W/APAP [Concomitant]
     Indication: PAIN IN EXTREMITY
  18. HYDROCODONE W/APAP [Concomitant]
     Indication: ARTHRALGIA
  19. UNNAMED STEROID [Concomitant]
     Indication: SPINAL COLUMN STENOSIS
     Dosage: 4-6 TIMES A YEAR
  20. CALCIUM WITH VITAMIN D [Concomitant]
     Indication: HYPOCALCAEMIA
  21. TYLENOL [Concomitant]
     Indication: PAIN

REACTIONS (1)
  - Iron deficiency [Not Recovered/Not Resolved]
